FAERS Safety Report 10643150 (Version 1)
Quarter: 2014Q4

REPORT INFORMATION
  Report Type: Spontaneous
  Country: US (occurrence: None)
  Receive Date: 20141209
  Receipt Date: 20141209
  Transmission Date: 20150529
  Serious: No
  Sender: FDA-Public Use
  Company Number: None

PATIENT
  Age: 16 Year
  Sex: Female
  Weight: 45.36 kg

DRUGS (1)
  1. LANTUS [Suspect]
     Active Substance: INSULIN GLARGINE
     Indication: DIABETES MELLITUS
     Route: 058
     Dates: start: 20141122, end: 20141124

REACTIONS (1)
  - Drug ineffective [None]

NARRATIVE: CASE EVENT DATE: 20141124
